FAERS Safety Report 18774179 (Version 1)
Quarter: 2021Q1

REPORT INFORMATION
  Report Type: Report from Study
  Country: DE (occurrence: DE)
  Receive Date: 20210122
  Receipt Date: 20210122
  Transmission Date: 20210419
  Serious: Yes (Other)
  Sender: FDA-Public Use
  Company Number: DE-SA-2021SA012413

PATIENT
  Age: 66 Year
  Sex: Male
  Weight: 53 kg

DRUGS (3)
  1. NSAID?K [Concomitant]
     Active Substance: KETOROLAC TROMETHAMINE
  2. CABAZITAXEL [Suspect]
     Active Substance: CABAZITAXEL
     Indication: HORMONE-REFRACTORY PROSTATE CANCER
     Dosage: 20 MG/M2, QCY
     Route: 042
     Dates: start: 20190325, end: 20190325
  3. CABAZITAXEL [Suspect]
     Active Substance: CABAZITAXEL
     Dosage: 20 MG/M2, QCY
     Route: 042
     Dates: start: 20190304, end: 20190304

REACTIONS (3)
  - Flushing [Recovered/Resolved]
  - Hypertensive crisis [Recovered/Resolved]
  - Infusion related reaction [Recovered/Resolved]

NARRATIVE: CASE EVENT DATE: 20190325
